FAERS Safety Report 7270656-7 (Version None)
Quarter: 2011Q1

REPORT INFORMATION
  Report Type: 
  Country: None (occurrence: None)
  Receive Date: 20110202
  Receipt Date: 20110126
  Transmission Date: 20110831
  Serious: Yes (Other)
  Sender: FDA-Public Use
  Company Number: A0910971A

PATIENT
  Age: 22 Year
  Sex: Female

DRUGS (4)
  1. VIREAD [Suspect]
     Indication: HIV INFECTION
     Dosage: 300MGD PER DAY
     Route: 048
     Dates: end: 20100923
  2. NORVIR [Suspect]
     Indication: HIV INFECTION
     Dosage: 100MGD PER DAY
     Route: 048
  3. EPZICOM [Suspect]
     Indication: HIV INFECTION
     Route: 048
     Dates: end: 20100923
  4. REYATAZ [Suspect]
     Indication: HIV INFECTION
     Dosage: 300MGD PER DAY
     Route: 048
     Dates: end: 20100923

REACTIONS (2)
  - DRUG EXPOSURE DURING PREGNANCY [None]
  - ABORTION SPONTANEOUS [None]
